FAERS Safety Report 7994951-9 (Version None)
Quarter: 2011Q4

REPORT INFORMATION
  Report Type: 
  Country: None (occurrence: None)
  Receive Date: 20111220
  Receipt Date: 20111216
  Transmission Date: 20120403
  Serious: Yes (Disabling, Other)
  Sender: FDA-Public Use
  Company Number: GB-B.I. PHARMACEUTICALS,INC./RIDGEFIELD-2011-UK-01364UK

PATIENT
  Age: 69 Year
  Sex: Female
  Weight: 63 kg

DRUGS (2)
  1. PRADAXA [Suspect]
     Indication: POSTOPERATIVE CARE
     Dosage: 220 MG
     Route: 048
     Dates: start: 20111027, end: 20111121
  2. CODEINE PHOSPHATE [Concomitant]
     Indication: ANALGESIC THERAPY
     Dosage: 30 MG
     Route: 048
     Dates: start: 20111108

REACTIONS (1)
  - OEDEMA [None]
